FAERS Safety Report 7236439-9 (Version None)
Quarter: 2011Q1

REPORT INFORMATION
  Report Type: 
  Country: None (occurrence: None)
  Receive Date: 20110120
  Receipt Date: 20110113
  Transmission Date: 20110831
  Serious: Yes (Hospitalization)
  Sender: FDA-Public Use
  Company Number: US-US-EMD SERONO, INC.-7033630

PATIENT
  Sex: Female
  Weight: 49 kg

DRUGS (1)
  1. REBIF [Suspect]
     Indication: PRODUCT USED FOR UNKNOWN INDICATION
     Route: 058
     Dates: start: 20100928

REACTIONS (6)
  - OEDEMA PERIPHERAL [None]
  - SKIN ULCER [None]
  - HYPOAESTHESIA [None]
  - SKIN DISCOLOURATION [None]
  - BLISTER [None]
  - SCAB [None]
